FAERS Safety Report 10760755 (Version 1)
Quarter: 2015Q1

REPORT INFORMATION
  Report Type: Spontaneous
  Country: US (occurrence: None)
  Receive Date: 20150202
  Receipt Date: 20150202
  Transmission Date: 20150721
  Serious: Yes (Other)
  Sender: FDA-Public Use
  Company Number: INT_00678_2015

PATIENT
  Age: 69 Year
  Sex: Female

DRUGS (2)
  1. PACLITAXEL (HQ SPECIALTY) [Suspect]
     Active Substance: PACLITAXEL
     Indication: PAPILLARY SEROUS ENDOMETRIAL CARCINOMA
     Dosage: ([3 CYCLES])
  2. CARBOPLATIN. [Suspect]
     Active Substance: CARBOPLATIN
     Indication: PAPILLARY SEROUS ENDOMETRIAL CARCINOMA
     Dosage: ([3 CYCLES])

REACTIONS (1)
  - Cholangitis sclerosing [None]
